FAERS Safety Report 24048145 (Version 1)
Quarter: 2024Q3

REPORT INFORMATION
  Report Type: Report from Study
  Country: JP (occurrence: JP)
  Receive Date: 20240703
  Receipt Date: 20240703
  Transmission Date: 20241017
  Serious: Yes (Death)
  Sender: SHIONOGI
  Company Number: JP-shionogi-202404838_FTR_P_1

PATIENT

DRUGS (1)
  1. FETROJA [Suspect]
     Active Substance: CEFIDEROCOL SULFATE TOSYLATE
     Indication: Pyelonephritis
     Dosage: 0.75 G, 1 PER 12 HOUR
     Route: 041
     Dates: start: 20240619, end: 20240622

REACTIONS (1)
  - Pyelonephritis [Fatal]

NARRATIVE: CASE EVENT DATE: 20240622
